FAERS Safety Report 14018399 (Version 1)
Quarter: 2017Q3

REPORT INFORMATION
  Report Type: Spontaneous
  Country: US (occurrence: US)
  Receive Date: 20170927
  Receipt Date: 20170927
  Transmission Date: 20171128
  Serious: Yes (Hospitalization, Disabling, Other)
  Sender: FDA-Public Use
  Company Number: None

PATIENT
  Age: 35 Year
  Sex: Female
  Weight: 55.35 kg

DRUGS (14)
  1. MECLIZINE [Concomitant]
     Active Substance: MECLIZINE HYDROCHLORIDE
  2. VITAMIN B12 [Concomitant]
     Active Substance: CYANOCOBALAMIN
  3. SYMBICORT [Concomitant]
     Active Substance: BUDESONIDE\FORMOTEROL FUMARATE DIHYDRATE
  4. ZYRTEX [Concomitant]
  5. ZOFRAN [Concomitant]
     Active Substance: ONDANSETRON HYDROCHLORIDE
  6. FLONASE [Concomitant]
     Active Substance: FLUTICASONE PROPIONATE
  7. CIPROFLOXIN [Suspect]
     Active Substance: CIPROFLOXACIN
     Indication: TONSILLITIS
     Dosage: ?          QUANTITY:20 TABLET(S);?
     Route: 048
  8. PEPCID [Concomitant]
     Active Substance: FAMOTIDINE
  9. PREMERAN CREAM [Concomitant]
  10. XOPENEX [Concomitant]
     Active Substance: LEVALBUTEROL HYDROCHLORIDE
  11. PATENASE [Concomitant]
  12. VALTREX [Concomitant]
     Active Substance: VALACYCLOVIR HYDROCHLORIDE
  13. ACIPHEX [Concomitant]
     Active Substance: RABEPRAZOLE SODIUM
  14. VITAMIN D [Concomitant]
     Active Substance: CHOLECALCIFEROL

REACTIONS (10)
  - Unevaluable event [None]
  - Irritable bowel syndrome [None]
  - Thirst [None]
  - Fatigue [None]
  - Dehydration [None]
  - White blood cell count decreased [None]
  - Platelet count decreased [None]
  - Therapy non-responder [None]
  - Blood pressure decreased [None]
  - Tendonitis [None]

NARRATIVE: CASE EVENT DATE: 20151116
